FAERS Safety Report 21328754 (Version 1)
Quarter: 2022Q3

REPORT INFORMATION
  Report Type: Spontaneous
  Country: US (occurrence: US)
  Receive Date: 20220913
  Receipt Date: 20220913
  Transmission Date: 20221027
  Serious: No
  Sender: FDA-Public Use
  Company Number: US-TAKEDA-2022TUS062417

PATIENT

DRUGS (1)
  1. ADDERALL XR [Suspect]
     Active Substance: AMPHETAMINE ASPARTATE\AMPHETAMINE SULFATE\DEXTROAMPHETAMINE SACCHARATE\DEXTROAMPHETAMINE SULFATE
     Indication: Product used for unknown indication
     Dosage: UNK UNK, Q72H
     Route: 065

REACTIONS (10)
  - Adverse drug reaction [Unknown]
  - Fatigue [Unknown]
  - Confusional state [Unknown]
  - Disturbance in attention [Unknown]
  - Headache [Unknown]
  - Heart rate increased [Unknown]
  - Depression [Unknown]
  - Anxiety [Unknown]
  - Hyperhidrosis [Unknown]
  - Irritability [Unknown]
